FAERS Safety Report 23723034 (Version 1)
Quarter: 2024Q2

REPORT INFORMATION
  Report Type: Report from Study
  Country: GB (occurrence: GB)
  Receive Date: 20240409
  Receipt Date: 20240409
  Transmission Date: 20240715
  Serious: No
  Sender: FDA-Public Use
  Company Number: GB-SANDOZ-SDZ2024GB017629

PATIENT
  Sex: Male

DRUGS (1)
  1. HYRIMOZ [Suspect]
     Active Substance: ADALIMUMAB-ADAZ
     Indication: Spinal osteoarthritis
     Dosage: 40 MG, Q2W
     Route: 058
     Dates: start: 20240111

REACTIONS (5)
  - Fatigue [Recovered/Resolved]
  - Injection site erythema [Recovered/Resolved]
  - Urticaria [Recovered/Resolved]
  - Pruritus [Recovered/Resolved]
  - Injection site rash [Unknown]
